FAERS Safety Report 8263427-6 (Version None)
Quarter: 2012Q1

REPORT INFORMATION
  Report Type: 
  Country: None (occurrence: None)
  Receive Date: 20120327
  Receipt Date: 20110422
  Transmission Date: 20120608
  Serious: Yes (Other)
  Sender: FDA-Public Use
  Company Number: PHHY2011US35203

PATIENT
  Age: 59 Year
  Sex: Male

DRUGS (4)
  1. LISINOPRIL (LINSINOPRIL) TABLET [Concomitant]
  2. MULTIVITAMINS (ASCORBIC ACID, ERGOCALCIFEROL, FOLIC ACID, NICOTINAMIDE [Concomitant]
  3. GLEEVEC [Suspect]
     Dosage: 400 MG, QD, ORAL
     Route: 048
  4. FISH OIL (FISH OIL) [Concomitant]

REACTIONS (2)
  - URINARY TRACT INFECTION [None]
  - DIARRHOEA [None]
